FAERS Safety Report 7011760-8 (Version None)
Quarter: 2010Q3

REPORT INFORMATION
  Report Type: 
  Country: None (occurrence: None)
  Receive Date: 20100923
  Receipt Date: 20090818
  Transmission Date: 20110219
  Serious: No
  Sender: FDA-Public Use
  Company Number: US-WYE-H10639009

PATIENT
  Sex: Female

DRUGS (7)
  1. PREMARIN [Suspect]
     Indication: FUNGAL INFECTION
     Dosage: 1/2 APPLICATOR EVERY OTHER TO EVEY NIGHT
     Route: 067
     Dates: start: 20071101, end: 20090501
  2. PREMARIN [Suspect]
     Dosage: 1 APPLICATOR NIGHTLY FOR A MONTH
     Dates: start: 20090501, end: 20090801
  3. TYLENOL W/ CODEINE NO. 3 [Concomitant]
  4. PRILOSEC [Concomitant]
  5. SYNTHROID [Concomitant]
  6. TOPAMAX [Concomitant]
  7. CRESTOR [Concomitant]

REACTIONS (2)
  - ALOPECIA [None]
  - OFF LABEL USE [None]
